FAERS Safety Report 9459025 (Version 1)
Quarter: 2013Q3

REPORT INFORMATION
  Report Type: Spontaneous
  Country: JP (occurrence: JP)
  Receive Date: 20130814
  Receipt Date: 20130814
  Transmission Date: 20140515
  Serious: Yes (Other)
  Sender: FDA-Public Use
  Company Number: JP-PFIZER INC-2013231821

PATIENT
  Age: 5 Year
  Sex: Female

DRUGS (4)
  1. DEXAMETHASONE SODIUM PHOSPHATE [Suspect]
     Dosage: UNK
  2. METHOTREXATE SODIUM [Suspect]
     Dosage: UNK
     Route: 037
  3. VINCRISTINE [Suspect]
     Dosage: UNK
  4. 6-MERCAPTOPURINE [Suspect]
     Dosage: UNK

REACTIONS (2)
  - Herpes zoster oticus [Recovered/Resolved]
  - Haemophilus bacteraemia [Recovered/Resolved]
